FAERS Safety Report 8077453-3 (Version None)
Quarter: 2012Q1

REPORT INFORMATION
  Report Type: 
  Country: None (occurrence: None)
  Receive Date: 20120127
  Receipt Date: 20120118
  Transmission Date: 20120608
  Serious: Yes (Hospitalization)
  Sender: FDA-Public Use
  Company Number: US-BRISTOL-MYERS SQUIBB COMPANY-16356404

PATIENT
  Age: 81 Year
  Sex: Male

DRUGS (2)
  1. ERBITUX [Suspect]
     Indication: COLORECTAL CANCER METASTATIC
     Dosage: LOADING DOSE: 720MG
     Dates: start: 20111101
  2. XELODA [Suspect]
     Indication: COLORECTAL CANCER METASTATIC
     Dates: start: 20111101

REACTIONS (1)
  - TOXICITY TO VARIOUS AGENTS [None]
